FAERS Safety Report 14047766 (Version 1)
Quarter: 2017Q4

REPORT INFORMATION
  Report Type: Spontaneous
  Country: FR (occurrence: FR)
  Receive Date: 20171005
  Receipt Date: 20171005
  Transmission Date: 20180321
  Serious: Yes (Other)
  Sender: FDA-Public Use
  Company Number: FR-PFIZER INC-2017420404

PATIENT
  Age: 73 Year
  Sex: Male

DRUGS (3)
  1. STILNOX [Concomitant]
     Active Substance: ZOLPIDEM TARTRATE
  2. LEXOMIL [Concomitant]
     Active Substance: BROMAZEPAM
  3. EFFEXOR LP [Suspect]
     Active Substance: VENLAFAXINE HYDROCHLORIDE
     Indication: DEPRESSION
     Dosage: 37.5 MG, 1X/DAY
     Route: 048
     Dates: start: 20160207, end: 20170222

REACTIONS (9)
  - Musculoskeletal stiffness [Recovered/Resolved]
  - Dementia [Recovered/Resolved]
  - Middle insomnia [Recovered/Resolved]
  - Autonomic nervous system imbalance [Recovered/Resolved]
  - Balance disorder [Recovered/Resolved]
  - Irritability [Recovered/Resolved]
  - Disorientation [Recovered/Resolved]
  - Aphasia [Recovered/Resolved]
  - Dysgraphia [Recovered/Resolved]

NARRATIVE: CASE EVENT DATE: 201702
